FAERS Safety Report 20867556 (Version 1)
Quarter: 2022Q2

REPORT INFORMATION
  Report Type: Report from Study
  Country: ES (occurrence: ES)
  Receive Date: 20220524
  Receipt Date: 20220524
  Transmission Date: 20220720
  Serious: Yes (Other)
  Sender: FDA-Public Use
  Company Number: None

PATIENT
  Age: 58 Year
  Sex: Female

DRUGS (1)
  1. XELJANZ [Suspect]
     Active Substance: TOFACITINIB CITRATE
     Indication: Rheumatoid arthritis
     Dosage: 5 MG, 2X/DAY (FREQ:12 H;5 MG /12 HOURS)
     Route: 048
     Dates: start: 20181125, end: 20181230

REACTIONS (1)
  - Rheumatic fever [Recovered/Resolved]

NARRATIVE: CASE EVENT DATE: 20181215
